FAERS Safety Report 25001651 (Version 1)
Quarter: 2025Q1

REPORT INFORMATION
  Report Type: Spontaneous
  Country: KR (occurrence: KR)
  Receive Date: 20250223
  Receipt Date: 20250223
  Transmission Date: 20250409
  Serious: Yes (Death, Other)
  Sender: ASTELLAS
  Company Number: KR-GILEAD-2025-0704702

PATIENT
  Sex: Male

DRUGS (3)
  1. AMBISOME [Suspect]
     Active Substance: AMPHOTERICIN B
     Indication: Myelodysplastic syndrome
     Dosage: 300 MG, QD
     Route: 065
     Dates: start: 20220330, end: 20220402
  2. MEROPENEM TRIHYDRATE;SODIUM CARBONATE ANHYDROUS [Concomitant]
     Indication: Product used for unknown indication
     Route: 065
     Dates: start: 20220322, end: 20220402
  3. VANCOMYCIN HYDROCHLORIDE [Concomitant]
     Active Substance: VANCOMYCIN HYDROCHLORIDE
     Indication: Product used for unknown indication
     Route: 065
     Dates: start: 20220321, end: 20220401

REACTIONS (1)
  - Blood creatinine abnormal [Fatal]

NARRATIVE: CASE EVENT DATE: 20220402
